FAERS Safety Report 8488065-1 (Version None)
Quarter: 2012Q3

REPORT INFORMATION
  Report Type: 
  Country: None (occurrence: None)
  Receive Date: 20120705
  Receipt Date: 20120626
  Transmission Date: 20120928
  Serious: Yes (Hospitalization, Other)
  Sender: FDA-Public Use
  Company Number: MX-BRISTOL-MYERS SQUIBB COMPANY-16689473

PATIENT
  Age: 73 Year
  Sex: Male
  Weight: 62 kg

DRUGS (4)
  1. LEVOTHYROXINE SODIUM [Concomitant]
     Indication: HORMONE REPLACEMENT THERAPY
     Dosage: 1TAB/24HRS
     Route: 048
     Dates: start: 20101101
  2. AMLODIPINE [Concomitant]
     Indication: HYPERTENSION
     Dosage: 1TAB/24HOURS
     Route: 048
     Dates: start: 20070101
  3. IRBESARTAN AND HYDROCHLOROTHIAZIDE [Suspect]
     Indication: HYPERTENSION
     Dosage: 1TAB/24HRS
     Route: 048
     Dates: start: 20070101
  4. CLONAZEPAM [Concomitant]
     Indication: INSOMNIA
     Dosage: 1/2TAB/DAY
     Route: 048
     Dates: start: 20070101

REACTIONS (3)
  - ABSCESS NECK [None]
  - SUTURE RELATED COMPLICATION [None]
  - THYROID NEOPLASM [None]
